FAERS Safety Report 8236538-9 (Version None)
Quarter: 2012Q1

REPORT INFORMATION
  Report Type: 
  Country: None (occurrence: None)
  Receive Date: 20120327
  Receipt Date: 20120319
  Transmission Date: 20120608
  Serious: Yes (Hospitalization, Other)
  Sender: FDA-Public Use
  Company Number: US-BAYER-2011-055143

PATIENT
  Age: 29 Year
  Sex: Female
  Weight: 119 kg

DRUGS (12)
  1. HEPARIN [Concomitant]
     Indication: PULMONARY EMBOLISM
  2. CIPROFLOXACIN HYDROCHLORIDE [Concomitant]
  3. IBUPROFEN [Concomitant]
  4. WARFARIN [Concomitant]
  5. YAZ [Suspect]
     Indication: CONTRACEPTION
     Dosage: UNK
     Dates: start: 20090301, end: 20090721
  6. OXYCODONE HCL [Concomitant]
  7. SENNA [Concomitant]
  8. COUMADIN [Concomitant]
     Indication: PULMONARY EMBOLISM
  9. LORAZEPAM [Concomitant]
  10. COUMADIN [Concomitant]
     Indication: DEEP VEIN THROMBOSIS
  11. HEPARIN [Concomitant]
     Indication: DEEP VEIN THROMBOSIS
  12. ZYRTEC [Concomitant]
     Dosage: 10 MG, QD
     Route: 048
     Dates: start: 20090721

REACTIONS (10)
  - PULMONARY EMBOLISM [None]
  - PULMONARY INFARCTION [None]
  - BACK PAIN [None]
  - CHEST PAIN [None]
  - ANXIETY [None]
  - DEPRESSION [None]
  - HAEMOPTYSIS [None]
  - DYSPNOEA [None]
  - DEEP VEIN THROMBOSIS [None]
  - PAIN [None]
